FAERS Safety Report 5406696-X (Version None)
Quarter: 2007Q3

REPORT INFORMATION
  Report Type: 
  Country: None (occurrence: None)
  Receive Date: 20070803
  Receipt Date: 20070803
  Transmission Date: 20080115
  Serious: Yes (Hospitalization)
  Sender: FDA-Public Use
  Company Number: None

PATIENT
  Sex: Female
  Weight: 89.5 kg

DRUGS (4)
  1. CISPLATIN [Suspect]
     Dosage: 95 MG
  2. DOXORUBICIN HYDROCHLORIDE [Suspect]
     Dosage: 85 MG
  3. G-CSF (FILGRASTIM, AMGEN) [Suspect]
     Dosage: 2400 MCG
  4. TAXOL [Suspect]
     Dosage: 310 MG

REACTIONS (5)
  - BODY TEMPERATURE INCREASED [None]
  - ESCHERICHIA INFECTION [None]
  - NEUTROPHIL COUNT DECREASED [None]
  - URINE ANALYSIS ABNORMAL [None]
  - WHITE BLOOD CELL COUNT DECREASED [None]
